FAERS Safety Report 24413388 (Version 5)
Quarter: 2025Q1

REPORT INFORMATION
  Report Type: Spontaneous
  Country: JP (occurrence: JP)
  Receive Date: 20241008
  Receipt Date: 20250212
  Transmission Date: 20250409
  Serious: Yes (Death, Other)
  Sender: ASTELLAS
  Company Number: JP-ASTELLAS-2024-AER-010905

PATIENT
  Age: 56 Year
  Sex: Male

DRUGS (1)
  1. CRESEMBA [Suspect]
     Active Substance: ISAVUCONAZONIUM SULFATE
     Indication: Bronchopulmonary aspergillosis
     Dosage: CAPSULE, HARD
     Route: 048
     Dates: start: 20240909, end: 20240914

REACTIONS (4)
  - Sepsis [Fatal]
  - Renal impairment [Unknown]
  - Hepatic function abnormal [Unknown]
  - Drug ineffective [Fatal]

NARRATIVE: CASE EVENT DATE: 20240912
